FAERS Safety Report 18821018 (Version 2)
Quarter: 2021Q1

REPORT INFORMATION
  Report Type: Spontaneous
  Country: US (occurrence: US)
  Receive Date: 20210202
  Receipt Date: 20210301
  Transmission Date: 20210419
  Serious: Yes (Other)
  Sender: FDA-Public Use
  Company Number: US-GLAXOSMITHKLINE-US2021GSK025345

PATIENT

DRUGS (4)
  1. ZANTAC [Suspect]
     Active Substance: RANITIDINE HYDROCHLORIDE
     Indication: FLATULENCE
     Dosage: 150 MG, QD
     Route: 065
     Dates: start: 201301, end: 201901
  2. ZANTAC [Suspect]
     Active Substance: RANITIDINE HYDROCHLORIDE
     Indication: FLATULENCE
     Dosage: 150 MG BOTH
     Route: 065
     Dates: start: 201301, end: 201901
  3. RANITIDINE CAPSULE [Suspect]
     Active Substance: RANITIDINE
     Indication: FLATULENCE
     Dosage: 150 MG, QD
     Route: 065
     Dates: start: 201301, end: 201901
  4. ZANTAC [Suspect]
     Active Substance: RANITIDINE HYDROCHLORIDE
     Indication: FLATULENCE
     Dosage: 150 MG BOTH
     Route: 065
     Dates: start: 201301, end: 201901

REACTIONS (2)
  - Oesophageal carcinoma [Unknown]
  - Bladder cancer [Unknown]
